FAERS Safety Report 7371238-9 (Version None)
Quarter: 2011Q1

REPORT INFORMATION
  Report Type: 
  Country: None (occurrence: None)
  Receive Date: 20110316
  Receipt Date: 20110304
  Transmission Date: 20110831
  Serious: Yes (Other)
  Sender: FDA-Public Use
  Company Number: 028717

PATIENT
  Age: 77 Year
  Sex: Male

DRUGS (4)
  1. LEVETIRACETAM [Suspect]
     Indication: STATUS EPILEPTICUS
     Dosage: (3 G BID INTRAVENOUS (NOT OTHERWISE SPECIFIED))
     Route: 042
  2. VALPROIC ACID [Concomitant]
  3. LACOSAMIDE [Suspect]
     Indication: STATUS EPILEPTICUS
     Dosage: (400 MG INITIAL BOLUS INTRAVENOUS (NOT OTHERWISE SPECIFIED)), (400 MG, DAILY INTRAVENOUS (NOT OTHERW
     Route: 040
  4. TOPIRAMATE [Concomitant]

REACTIONS (2)
  - HEMIPARESIS [None]
  - OFF LABEL USE [None]
